FAERS Safety Report 4849438-9 (Version None)
Quarter: 2005Q4

REPORT INFORMATION
  Report Type: 
  Country: None (occurrence: None)
  Receive Date: 20051207
  Receipt Date: 20051124
  Transmission Date: 20060501
  Serious: Yes (Death)
  Sender: FDA-Public Use
  Company Number: 2005160832

PATIENT
  Age: 31 Year
  Sex: Female

DRUGS (8)
  1. VIAGRA [Suspect]
     Indication: PULMONARY HYPERTENSION
     Dosage: 75 MG, ORAL
     Route: 048
     Dates: start: 20021001, end: 20050423
  2. WARFARIN SODIUM [Suspect]
     Indication: PULMONARY HYPERTENSION
     Dosage: 3.5 MG, ORAL
     Route: 048
     Dates: start: 20021001, end: 20041018
  3. EPOPROSTENOL (EPOPROSTENOL) [Suspect]
     Indication: PULMONARY HYPERTENSION
     Dosage: 50 NG/KG/MIN, INTRAVENOUS
     Route: 042
     Dates: start: 20040930, end: 20050423
  4. DOPAMINE HCL [Concomitant]
  5. DOBUTAMINE (DOBUTAMINE) [Concomitant]
  6. LASIX [Concomitant]
  7. SOLDACTONE               (POTASSIUM CANRENOATE, TROMETAMOL) [Concomitant]
  8. ALDACTONE [Concomitant]

REACTIONS (3)
  - DISEASE PROGRESSION [None]
  - PULMONARY HYPERTENSION [None]
  - RIGHT VENTRICULAR FAILURE [None]
